FAERS Safety Report 17866385 (Version 2)
Quarter: 2020Q4

REPORT INFORMATION
  Report Type: Spontaneous
  Country: GB (occurrence: GB)
  Receive Date: 20200605
  Receipt Date: 20201006
  Transmission Date: 20210113
  Serious: Yes (Life-Threatening, Hospitalization, Other)
  Sender: FDA-Public Use
  Company Number: GB-TEVA-2020-GB-1244020

PATIENT
  Age: 72 Year
  Sex: Female
  Weight: 32.7 kg

DRUGS (30)
  1. WARFARIN [Suspect]
     Active Substance: WARFARIN
     Indication: ATRIAL FIBRILLATION
     Dosage: 3 MG ,VARIABLE - NEWLY STARTED (LOW WARFARIN REQUIREMENT)SINGLE DOSE. DOSE ADJUSTED ACCORDING TO INR
     Route: 048
     Dates: start: 20200401
  2. WARFARIN [Suspect]
     Active Substance: WARFARIN
     Dosage: 1 MG ,VARIABLE - NEWLY STARTED (LOW WARFARIN REQUIREMENT). SINGLE DOSE. DOSE ADJUSTED ACCORDING TO I
     Route: 048
     Dates: start: 20200411
  3. INSULIN [Concomitant]
     Active Substance: INSULIN NOS
     Dosage: 100IU
     Dates: start: 20200412
  4. LOPERAMIDE [Concomitant]
     Active Substance: LOPERAMIDE
     Dosage: 2 MG ,MAXIMUM DOSE OF 8 TABLETS
     Route: 048
     Dates: start: 20200306, end: 20200308
  5. MORPHINE SULFATE. [Concomitant]
     Active Substance: MORPHINE SULFATE
     Dosage: 2.5 MG
     Route: 030
     Dates: start: 20200216
  6. SODIUM HYDROGEN CARBONATE [Concomitant]
     Active Substance: SODIUM BICARBONATE
     Route: 042
     Dates: start: 20200413
  7. WARFARIN [Suspect]
     Active Substance: WARFARIN
     Dosage: 5 MG ,VARIABLE - NEWLY STARTED (LOW WARFARIN REQUIREMENT). SINGLE DOSE. DOSE ADJUSTED ACCORDING TO I
     Route: 048
     Dates: start: 20200403
  8. GENTAMICIN. [Concomitant]
     Active Substance: GENTAMICIN
     Indication: URINARY TRACT INFECTION
     Dosage: 120 MG
     Route: 042
     Dates: start: 20200413
  9. PREDNISOLONE. [Concomitant]
     Active Substance: PREDNISOLONE
     Dosage: 40 MILLIGRAM DAILY; IN THE MORNING. AFTER BREAKFAST
     Route: 048
     Dates: start: 20200214
  10. MAGNESIUM SULFATE. [Concomitant]
     Active Substance: MAGNESIUM SULFATE
     Indication: HYPOMAGNESAEMIA
     Dosage: 20MILIMOL
     Route: 042
     Dates: start: 20200216
  11. IPRATROPIUM [Concomitant]
     Active Substance: IPRATROPIUM
     Dosage: 500 MCG
     Dates: start: 20200215
  12. WARFARIN [Suspect]
     Active Substance: WARFARIN
     Dosage: 2.5 MG ,VARIABLE - NEWLY STARTED (LOW WARFARIN REQUIREMENT). SINGLE DOSE. DOSE ADJUSTED ACCORDING TO
     Route: 048
     Dates: start: 20200331
  13. CALCIUM GLUCONATE. [Concomitant]
     Active Substance: CALCIUM GLUCONATE
     Dosage: 10ML
     Route: 042
     Dates: start: 20200413
  14. MOMETASONE [Concomitant]
     Active Substance: MOMETASONE
     Dosage: 50MCG/DOSE. BOTH NOSTRILS. IN THE MORNING
     Route: 045
  15. CO-AMOXICLAV [Concomitant]
     Active Substance: AMOXICILLIN\CLAVULANATE POTASSIUM
     Indication: PNEUMONIA
     Dosage: 1.2 GRAM
     Route: 042
     Dates: start: 20200323
  16. HEPARIN [Concomitant]
     Active Substance: HEPARIN SODIUM
     Route: 042
     Dates: start: 20200229
  17. BISOPROLOL [Concomitant]
     Active Substance: BISOPROLOL
     Indication: ATRIAL FIBRILLATION
     Dosage: 10 MG
     Route: 048
     Dates: start: 20200215
  18. DIGOXIN. [Concomitant]
     Active Substance: DIGOXIN
     Dosage: 500 MCG
     Route: 048
     Dates: start: 20200216
  19. APIXABAN [Concomitant]
     Active Substance: APIXABAN
     Indication: ATRIAL FIBRILLATION
     Dosage: 5 MG ,STOPPED AND SWITCHED TO WARFARIN
     Route: 048
  20. SANDO-K [Concomitant]
     Dosage: 3 DOSAGE FORMS
     Route: 048
     Dates: start: 20200326
  21. AMLODIPINE [Concomitant]
     Active Substance: AMLODIPINE BESYLATE
     Indication: HYPOTENSION
     Dosage: 5 MILLIGRAM DAILY; IN THE MORNING
     Route: 048
  22. DIGOXIN. [Concomitant]
     Active Substance: DIGOXIN
     Dosage: 250 MCG
     Route: 048
     Dates: start: 20200216
  23. PHYTOMENADIONE [Concomitant]
     Active Substance: PHYTONADIONE
     Dosage: 2 MG
     Route: 042
     Dates: start: 20200414
  24. SODIUM LACTATE. [Concomitant]
     Active Substance: SODIUM LACTATE
     Dates: start: 20200302
  25. SALMETEROL AND FLUTICASONE [Concomitant]
     Active Substance: FLUTICASONE PROPIONATE\SALMETEROL XINAFOATE
     Dosage: 2 DOSAGE FORMS ,50MCG/500MCG. BLISTER(S)
     Route: 055
  26. CO-AMOXICLAV [Concomitant]
     Active Substance: AMOXICILLIN\CLAVULANATE POTASSIUM
     Indication: CHRONIC OBSTRUCTIVE PULMONARY DISEASE
     Dosage: 3 DOSAGE FORMS DAILY; 500/125MG
     Route: 048
     Dates: start: 20200214, end: 20200219
  27. ENOXAPARIN [Concomitant]
     Active Substance: ENOXAPARIN
     Dosage: 40 MILLIGRAM
     Route: 058
     Dates: start: 20200215
  28. HYDROXOCOBALAMIN [Concomitant]
     Active Substance: HYDROXOCOBALAMIN
     Route: 030
     Dates: start: 20200308
  29. HYDROCORTISONE SODIUM SUCCINATE [Concomitant]
     Active Substance: HYDROCORTISONE SODIUM SUCCINATE
     Route: 042
     Dates: start: 20200216
  30. SALBUTAMOL [Concomitant]
     Active Substance: ALBUTEROL
     Dosage: 2 DOSAGE FORMS ,EVERY 4-6 HOURLY WHEN REQUIRED
     Route: 055

REACTIONS (10)
  - Pyrexia [Unknown]
  - Malaise [Unknown]
  - Pneumonia [Unknown]
  - Diarrhoea [Unknown]
  - International normalised ratio increased [Recovered/Resolved]
  - Cough [Unknown]
  - Pulmonary hilar enlargement [Unknown]
  - Blood albumin decreased [Unknown]
  - COVID-19 [Unknown]
  - Renal failure [Unknown]

NARRATIVE: CASE EVENT DATE: 20200322
